FAERS Safety Report 8385948-8 (Version None)
Quarter: 2012Q2

REPORT INFORMATION
  Report Type: 
  Country: None (occurrence: None)
  Receive Date: 20120523
  Receipt Date: 20120514
  Transmission Date: 20120825
  Serious: Yes (Hospitalization)
  Sender: FDA-Public Use
  Company Number: 2012SP023018

PATIENT
  Age: 62 Year
  Sex: Female

DRUGS (7)
  1. DEXAMETHASONE SODIUM PHOSPHATE [Concomitant]
  2. BACTRIM [Concomitant]
  3. KEPPRA [Concomitant]
  4. RABEPRAZOLE SODIUM [Concomitant]
  5. TEMODAL [Suspect]
     Indication: GLIOBLASTOMA
     Dosage: 140 MG;QD;PO
     Route: 048
     Dates: start: 20120309, end: 20120419
  6. METFORMIN HCL [Concomitant]
  7. REPAGLINIDE [Concomitant]

REACTIONS (1)
  - HEPATITIS TOXIC [None]
